FAERS Safety Report 7611909-X (Version None)
Quarter: 2011Q3

REPORT INFORMATION
  Report Type: 
  Country: None (occurrence: None)
  Receive Date: 20110715
  Receipt Date: 20110711
  Transmission Date: 20111222
  Serious: Yes (Death)
  Sender: FDA-Public Use
  Company Number: GB-ASTRAZENECA-2011SE41057

PATIENT
  Age: 70 Year
  Sex: Female
  Weight: 80 kg

DRUGS (5)
  1. REMIFENTANIL [Suspect]
     Route: 042
  2. SUXAMETHONIUM [Suspect]
     Route: 042
  3. PROPOFOL [Suspect]
     Indication: ANAESTHESIA
     Dosage: TOTAL DAILY DOSE OF 100 MG
     Route: 042
     Dates: start: 20050127
  4. HYDROCORTISONE [Concomitant]
     Route: 048
  5. LEVOTHYROXINE SODIUM [Concomitant]
     Route: 048

REACTIONS (3)
  - ACUTE MYOCARDIAL INFARCTION [None]
  - BRADYCARDIA [None]
  - CARDIAC ARREST [None]
